FAERS Safety Report 4490154-3 (Version None)
Quarter: 2004Q4

REPORT INFORMATION
  Report Type: 
  Country: None (occurrence: None)
  Receive Date: 20041027
  Receipt Date: 20041013
  Transmission Date: 20050328
  Serious: Yes (Hospitalization)
  Sender: FDA-Public Use
  Company Number: 206211

PATIENT
  Age: 64 Year
  Sex: Female
  Weight: 58.9676 kg

DRUGS (2)
  1. AVONEX [Suspect]
     Indication: MULTIPLE SCLEROSIS
     Dosage: 30 MCG QW IM
     Route: 030
     Dates: start: 20000101, end: 20040813
  2. MEDICATIONS [Concomitant]

REACTIONS (10)
  - BLOOD CHOLESTEROL INCREASED [None]
  - BLOOD PRESSURE INCREASED [None]
  - CONDITION AGGRAVATED [None]
  - FALL [None]
  - GAIT DISTURBANCE [None]
  - HIP FRACTURE [None]
  - HYPOAESTHESIA [None]
  - NAUSEA [None]
  - OSTEOPOROSIS [None]
  - STRESS SYMPTOMS [None]
